FAERS Safety Report 23088275 (Version 1)
Quarter: 2023Q4

REPORT INFORMATION
  Report Type: Spontaneous
  Country: US (occurrence: US)
  Receive Date: 20231020
  Receipt Date: 20231020
  Transmission Date: 20240109
  Serious: Yes (Hospitalization)
  Sender: FDA-Public Use
  Company Number: US-002147023-NVSC2023US221174

PATIENT
  Sex: Female

DRUGS (1)
  1. MEKINIST [Suspect]
     Active Substance: TRAMETINIB DIMETHYL SULFOXIDE
     Indication: Ovarian cancer
     Dosage: 40 ML, QD
     Route: 048
     Dates: start: 202309

REACTIONS (4)
  - Urinary tract stoma complication [Unknown]
  - Diarrhoea [Unknown]
  - Abdominal pain upper [Unknown]
  - Product use in unapproved indication [Unknown]
